FAERS Safety Report 6581779-X (Version None)
Quarter: 2010Q1

REPORT INFORMATION
  Report Type: 
  Country: None (occurrence: None)
  Receive Date: 20100215
  Receipt Date: 20100210
  Transmission Date: 20100710
  Serious: Yes (Death, Hospitalization)
  Sender: FDA-Public Use
  Company Number: PHHO2010FR02265

PATIENT
  Sex: Female
  Weight: 57 kg

DRUGS (11)
  1. STI571/CGP57148B T35717+TAB [Suspect]
     Indication: ACUTE LYMPHOCYTIC LEUKAEMIA
     Dosage: UNK
     Route: 048
  2. DEPAKENE [Suspect]
  3. DEROXAT [Concomitant]
  4. LEVOTHYROXINE SODIUM [Concomitant]
  5. IMOVANE [Concomitant]
  6. INIPOMP [Concomitant]
  7. BIPERIDYS [Concomitant]
  8. LASILIX [Concomitant]
  9. DIFFU K [Concomitant]
  10. SPASFON [Concomitant]
  11. LEXOMIL [Concomitant]

REACTIONS (17)
  - ALTERED STATE OF CONSCIOUSNESS [None]
  - APHASIA [None]
  - CEREBRAL DISORDER [None]
  - CONFUSIONAL STATE [None]
  - DISORIENTATION [None]
  - ENCEPHALOPATHY [None]
  - ENDOTRACHEAL INTUBATION [None]
  - GAIT DISTURBANCE [None]
  - GENERAL PHYSICAL HEALTH DETERIORATION [None]
  - HYPOALBUMINAEMIA [None]
  - HYPOKINESIA [None]
  - HYPOTHYROIDISM [None]
  - MECHANICAL VENTILATION [None]
  - OEDEMA [None]
  - PARTIAL SEIZURES [None]
  - VISUAL ACUITY REDUCED [None]
  - VOMITING [None]
